FAERS Safety Report 5022997-1 (Version None)
Quarter: 2006Q2

REPORT INFORMATION
  Report Type: 
  Country: None (occurrence: None)
  Receive Date: 20060426
  Receipt Date: 20060205
  Transmission Date: 20061013
  Serious: Yes (Other)
  Sender: FDA-Public Use
  Company Number: 2006018037

PATIENT
  Sex: Male

DRUGS (2)
  1. LYRICA [Suspect]
  2. CIALIS [Suspect]

REACTIONS (2)
  - DRUG INTERACTION [None]
  - SYNCOPE [None]
